FAERS Safety Report 9348588 (Version 1)
Quarter: 2013Q2

REPORT INFORMATION
  Report Type: Spontaneous
  Country: US (occurrence: None)
  Receive Date: 20130613
  Receipt Date: 20130613
  Transmission Date: 20140414
  Serious: No
  Sender: FDA-Public Use
  Company Number: None

PATIENT
  Sex: 0

DRUGS (1)
  1. HUMIRA [Suspect]
     Indication: ANKYLOSING SPONDYLITIS
     Route: 058

REACTIONS (2)
  - Joint swelling [None]
  - Local swelling [None]
